FAERS Safety Report 5147863-2 (Version None)
Quarter: 2006Q4

REPORT INFORMATION
  Report Type: 
  Country: None (occurrence: None)
  Receive Date: 20061110
  Receipt Date: 20061101
  Transmission Date: 20070319
  Serious: Yes (Death, Hospitalization)
  Sender: FDA-Public Use
  Company Number: HQWYE022101NOV06

PATIENT
  Sex: Female
  Weight: 48 kg

DRUGS (10)
  1. ENBREL [Suspect]
     Indication: RHEUMATOID ARTHRITIS
     Route: 058
     Dates: start: 20060331, end: 20060817
  2. AZATHIOPRINE [Concomitant]
  3. PARIET [Concomitant]
  4. PREDONINE [Concomitant]
  5. OLMETEC [Concomitant]
  6. ISCOTIN [Concomitant]
  7. BENET [Concomitant]
  8. LOXONIN [Concomitant]
  9. BREDININ [Concomitant]
  10. LIPOVAS ^BANYU^ [Concomitant]

REACTIONS (3)
  - AGRANULOCYTOSIS [None]
  - HYPERGLYCAEMIA [None]
  - PNEUMOCYSTIS JIROVECI PNEUMONIA [None]
